FAERS Safety Report 4560744-8 (Version None)
Quarter: 2005Q1

REPORT INFORMATION
  Report Type: 
  Country: None (occurrence: None)
  Receive Date: 20050124
  Receipt Date: 20050107
  Transmission Date: 20050727
  Serious: Yes (Hospitalization)
  Sender: FDA-Public Use
  Company Number: 9701

PATIENT
  Age: 70 Year
  Sex: Male

DRUGS (17)
  1. LEUCOVORIN CALCIUM [Suspect]
  2. IRINOTECAN [Suspect]
  3. FLUOROURACIL [Suspect]
  4. EKB-569 [Suspect]
     Indication: COLORECTAL CANCER
     Dosage: 25 MG
     Route: 048
     Dates: start: 20030124, end: 20030212
  5. EKB-569 [Suspect]
     Indication: COLORECTAL CANCER
     Dosage: 25 MG
     Route: 048
     Dates: start: 20030219
  6. ACENOCOUMAROL [Concomitant]
  7. CANDESARTAN [Concomitant]
  8. NEBIVOLOL [Concomitant]
  9. LANSOPRAZOLE [Concomitant]
  10. DIAZEPAM [Concomitant]
  11. TAMSULOSIN [Concomitant]
  12. TROPISETRON [Concomitant]
  13. DEXAMETHASONE [Concomitant]
  14. PANTOPRAZOLE [Concomitant]
  15. OMEPRAZOLE [Concomitant]
  16. PROPACETAMOL [Concomitant]
  17. TAZOBACTAM [Concomitant]

REACTIONS (12)
  - ABDOMINAL INFECTION [None]
  - ATELECTASIS [None]
  - BLOOD BICARBONATE INCREASED [None]
  - CARDIOMEGALY [None]
  - FLATULENCE [None]
  - HILAR LYMPHADENOPATHY [None]
  - INTESTINAL DILATATION [None]
  - PLEURAL EFFUSION [None]
  - PO2 DECREASED [None]
  - RENAL FAILURE [None]
  - SEPTIC SHOCK [None]
  - URINARY SEDIMENT ABNORMAL [None]
